FAERS Safety Report 16116323 (Version 1)
Quarter: 2019Q1

REPORT INFORMATION
  Report Type: Spontaneous
  Country: US (occurrence: US)
  Receive Date: 20190221
  Receipt Date: 20190221
  Transmission Date: 20190418
  Serious: Yes (Hospitalization)
  Sender: FDA-Public Use
  Company Number: None

PATIENT
  Age: 54 Year
  Sex: Male
  Weight: 92 kg

DRUGS (1)
  1. LISINOPRIL. [Suspect]
     Active Substance: LISINOPRIL
     Dosage: ?          OTHER DOSE:2.5MG;?
     Route: 048
     Dates: start: 20161116, end: 20181104

REACTIONS (2)
  - Cough [None]
  - Angioedema [None]

NARRATIVE: CASE EVENT DATE: 20181104
